FAERS Safety Report 6733812-X (Version None)
Quarter: 2010Q2

REPORT INFORMATION
  Report Type: 
  Country: None (occurrence: None)
  Receive Date: 20100520
  Receipt Date: 20100517
  Transmission Date: 20101027
  Serious: Yes (Hospitalization)
  Sender: FDA-Public Use
  Company Number: JP-BRISTOL-MYERS SQUIBB COMPANY-15110125

PATIENT
  Age: 61 Year
  Sex: Male

DRUGS (2)
  1. TAXOL [Suspect]
     Indication: NEOPLASM MALIGNANT
     Route: 041
  2. CARBOPLATIN [Suspect]
     Indication: NEOPLASM MALIGNANT

REACTIONS (1)
  - LUNG DISORDER [None]
